FAERS Safety Report 9170553 (Version 1)
Quarter: 2013Q1

REPORT INFORMATION
  Report Type: Spontaneous
  Country: US (occurrence: None)
  Receive Date: 20130307
  Receipt Date: 20130307
  Transmission Date: 20140127
  Serious: Yes (Disabling)
  Sender: FDA-Public Use
  Company Number: AUR-APL-2012-04894

PATIENT
  Sex: Male

DRUGS (1)
  1. CIPROFLOXACIN (CIPROFLOXACIN) [Suspect]
     Indication: PRODUCT USED FOR UNKNOWN INDICATION

REACTIONS (6)
  - Muscle rigidity [None]
  - Joint stiffness [None]
  - Gait disturbance [None]
  - Quality of life decreased [None]
  - Tendon disorder [None]
  - Arthropathy [None]
